FAERS Safety Report 10701672 (Version 1)
Quarter: 2015Q1

REPORT INFORMATION
  Report Type: Report from Study
  Country: US (occurrence: US)
  Receive Date: 20150109
  Receipt Date: 20150109
  Transmission Date: 20150721
  Serious: Yes (Hospitalization, Other)
  Sender: FDA-Public Use
  Company Number: US-EXELIXIS-XL18415005092

PATIENT
  Age: 33 Year
  Sex: Female

DRUGS (1)
  1. XL184 [Suspect]
     Active Substance: CABOZANTINIB
     Indication: SOFT TISSUE NEOPLASM
     Dosage: 60 MG, QD
     Route: 048
     Dates: start: 20140917, end: 20141029

REACTIONS (6)
  - Abdominal pain [Recovering/Resolving]
  - Nausea [Recovering/Resolving]
  - Vomiting [Recovering/Resolving]
  - Dehydration [Recovering/Resolving]
  - Diarrhoea [Recovering/Resolving]
  - Enterocolitis [Recovering/Resolving]

NARRATIVE: CASE EVENT DATE: 20141030
